FAERS Safety Report 4337953-6 (Version None)
Quarter: 2004Q2

REPORT INFORMATION
  Report Type: 
  Country: None (occurrence: None)
  Receive Date: 20040407
  Receipt Date: 20010325
  Transmission Date: 20050107
  Serious: Yes (Hospitalization)
  Sender: FDA-Public Use
  Company Number: FR-JNJFOC-20040306013

PATIENT

DRUGS (5)
  1. RISPERDAL [Suspect]
     Indication: PSYCHOTIC DISORDER
     Dosage: 2 MG, IN 1 DAY, ORAL
     Route: 048
     Dates: end: 20040119
  2. MEPROBAMATE [Concomitant]
  3. FLUVOXAMINE MALEATE [Concomitant]
  4. MOVICOL (NULYTELY) [Concomitant]
  5. KARDEGIC (ACETYLSALICYLIC LYSINE) [Concomitant]

REACTIONS (4)
  - CONFUSIONAL STATE [None]
  - HYPERTHERMIA MALIGNANT [None]
  - HYPERTONIA [None]
  - RHABDOMYOLYSIS [None]
